FAERS Safety Report 19785741 (Version 3)
Quarter: 2022Q4

REPORT INFORMATION
  Report Type: Spontaneous
  Country: DE (occurrence: DE)
  Receive Date: 20210903
  Receipt Date: 20221206
  Transmission Date: 20230113
  Serious: Yes (Hospitalization, Other)
  Sender: FDA-Public Use
  Company Number: None

PATIENT
  Age: 73 Year
  Sex: Female
  Weight: 100 kg

DRUGS (15)
  1. METHOTREXATE [Suspect]
     Active Substance: METHOTREXATE
     Indication: Product used for unknown indication
     Dosage: 1X PER WEEK
  2. CERTOLIZUMAB PEGOL [Suspect]
     Active Substance: CERTOLIZUMAB PEGOL
     Indication: Product used for unknown indication
     Dosage: 1X PER WEEK
  3. CHOLECALCIFEROL [Concomitant]
     Active Substance: CHOLECALCIFEROL
     Dosage: 1X PER WEEK
  4. TORSEMIDE [Concomitant]
     Active Substance: TORSEMIDE
     Dosage: 10 MG, 1-0-0-0
  5. CANDESARTAN CILEXETIL AND HYDROCHLOROTHIAZIDE [Concomitant]
     Active Substance: CANDESARTAN CILEXETIL\HYDROCHLOROTHIAZIDE
     Dosage: 32,12.5 MG, 1-0-0-0
  6. INSULIN LISPRO [Concomitant]
     Active Substance: INSULIN LISPRO
     Dosage: 40-0-25-0
  7. MOXONIDINE [Concomitant]
     Active Substance: MOXONIDINE
     Dosage: 0.2 MG, 1-0-1-0
  8. EDOXABAN [Concomitant]
     Active Substance: EDOXABAN
     Dosage: 30 MG, 1-0-0-0
  9. ATORVASTATIN [Concomitant]
     Active Substance: ATORVASTATIN
     Dosage: 40 MG, 0-0-1-0
  10. TILIDINE [Concomitant]
     Active Substance: TILIDINE
     Dosage: 50 MG, 0-0-1-0
  11. CARVEDILOL [Concomitant]
     Active Substance: CARVEDILOL
     Dosage: 12.5 MG, 1-0-1-0
  12. METFORMIN [Concomitant]
     Active Substance: METFORMIN HYDROCHLORIDE
     Dosage: 1000 MG, 1-0-1-0
  13. CELECOXIB [Concomitant]
     Active Substance: CELECOXIB
     Dosage: 100 MG, 1-0-0-0
  14. PANTOPRAZOLE [Concomitant]
     Active Substance: PANTOPRAZOLE
     Dosage: 40 MG, 1-0-0-0
  15. APIXABAN [Concomitant]
     Active Substance: APIXABAN
     Dosage: 30 MG, 1-0-0-0

REACTIONS (20)
  - Pyrexia [Unknown]
  - Dyspnoea [Unknown]
  - Constipation [Unknown]
  - General physical health deterioration [Unknown]
  - Dysuria [Unknown]
  - Cough [Unknown]
  - Abdominal pain [Unknown]
  - Vomiting [Unknown]
  - Electrocardiogram abnormal [Unknown]
  - Oedema peripheral [Unknown]
  - Atrial fibrillation [Unknown]
  - Tachypnoea [Unknown]
  - Weight increased [Unknown]
  - Condition aggravated [Unknown]
  - Flank pain [Unknown]
  - Hyperglycaemia [Unknown]
  - Renal pain [Unknown]
  - Renal impairment [Unknown]
  - Urinary tract infection [Unknown]
  - Hydronephrosis [Unknown]
